FAERS Safety Report 10768880 (Version 1)
Quarter: 2015Q1

REPORT INFORMATION
  Report Type: Spontaneous
  Country: TR (occurrence: None)
  Receive Date: 20150204
  Receipt Date: 20150204
  Transmission Date: 20150721
  Serious: Yes (Hospitalization)
  Sender: FDA-Public Use
  Company Number: UCM201501-000058

PATIENT
  Age: 45 Year
  Sex: Female

DRUGS (2)
  1. BISOPROLOL FUMARATE (BISOPROLOL FUMARATE) [Suspect]
     Active Substance: BISOPROLOL FUMARATE
     Indication: PALPITATIONS
  2. BISOPROLOL FUMARATE (BISOPROLOL FUMARATE) [Suspect]
     Active Substance: BISOPROLOL FUMARATE
     Indication: MITRAL VALVE INCOMPETENCE

REACTIONS (1)
  - Stress cardiomyopathy [None]
